FAERS Safety Report 6807524-8 (Version None)
Quarter: 2010Q2

REPORT INFORMATION
  Report Type: 
  Country: None (occurrence: None)
  Receive Date: 20100629
  Receipt Date: 20080929
  Transmission Date: 20101027
  Serious: No
  Sender: FDA-Public Use
  Company Number: US-PFIZER INC-2008082828

PATIENT
  Sex: Female
  Weight: 46.4 kg

DRUGS (3)
  1. SILDENAFIL CITRATE [Suspect]
     Indication: PULMONARY HYPERTENSION
     Dates: start: 20050101
  2. REVATIO [Suspect]
     Indication: PULMONARY HYPERTENSION
     Dates: start: 20080922
  3. TRACLEER [Concomitant]

REACTIONS (2)
  - CHEST PAIN [None]
  - OESOPHAGEAL PAIN [None]
